FAERS Safety Report 25765158 (Version 2)
Quarter: 2025Q3

REPORT INFORMATION
  Report Type: Spontaneous
  Country: JP (occurrence: JP)
  Receive Date: 20250905
  Receipt Date: 20250929
  Transmission Date: 20251020
  Serious: Yes (Hospitalization, Congenital Anomaly, Other)
  Sender: NOVARTIS
  Company Number: JP-002147023-NVSJ2025JP008803

PATIENT

DRUGS (4)
  1. ELTROMBOPAG OLAMINE [Suspect]
     Active Substance: ELTROMBOPAG OLAMINE
     Indication: Foetal exposure during pregnancy
     Dosage: MATERNAL  EXPOSURE DURING  PREGNANCY: 12.5 MG, QD
     Route: 064
     Dates: start: 20250515
  2. ELTROMBOPAG OLAMINE [Suspect]
     Active Substance: ELTROMBOPAG OLAMINE
     Route: 064
  3. ELTROMBOPAG OLAMINE [Suspect]
     Active Substance: ELTROMBOPAG OLAMINE
     Route: 064
  4. ELTROMBOPAG OLAMINE [Suspect]
     Active Substance: ELTROMBOPAG OLAMINE
     Route: 064
     Dates: end: 20250829

REACTIONS (6)
  - Cerebral haemorrhage foetal [Unknown]
  - Disseminated intravascular coagulation [Unknown]
  - Thrombosis [Unknown]
  - Foetal hypokinesia [Unknown]
  - Premature baby [Unknown]
  - Foetal exposure during pregnancy [Unknown]

NARRATIVE: CASE EVENT DATE: 20250801
